FAERS Safety Report 23111871 (Version 2)
Quarter: 2023Q4

REPORT INFORMATION
  Report Type: Spontaneous
  Country: US (occurrence: US)
  Receive Date: 20231026
  Receipt Date: 20231106
  Transmission Date: 20240110
  Serious: Yes (Life-Threatening, Hospitalization)
  Sender: FDA-Public Use
  Company Number: US-TEVA-2023-US-2937347

PATIENT
  Age: 60 Year
  Sex: Male

DRUGS (6)
  1. FENTANYL [Suspect]
     Active Substance: FENTANYL\FENTANYL CITRATE
     Indication: Pain
     Dosage: DRIP
     Route: 065
  2. DEXTROMETHORPHAN [Suspect]
     Active Substance: DEXTROMETHORPHAN
     Indication: Cough
     Route: 065
  3. PENICILLIN G [Concomitant]
     Active Substance: PENICILLIN G
     Indication: Bordetella infection
     Route: 065
  4. PENICILLIN G [Concomitant]
     Active Substance: PENICILLIN G
     Indication: Streptococcal bacteraemia
  5. MEROPENEM [Concomitant]
     Active Substance: MEROPENEM
     Indication: Bordetella infection
     Route: 065
  6. MEROPENEM [Concomitant]
     Active Substance: MEROPENEM
     Indication: Streptococcal bacteraemia

REACTIONS (2)
  - Serotonin syndrome [Recovering/Resolving]
  - Respiratory distress [Recovering/Resolving]
